FAERS Safety Report 5767955-4 (Version None)
Quarter: 2008Q2

REPORT INFORMATION
  Report Type: 
  Country: None (occurrence: None)
  Receive Date: 20080606
  Receipt Date: 20080527
  Transmission Date: 20081010
  Serious: Yes (Hospitalization)
  Sender: FDA-Public Use
  Company Number: 2008-177056-NL

PATIENT
  Age: 46 Year
  Sex: Female

DRUGS (1)
  1. ETONOGESTREL (BATCH #: 599375/619103A) [Suspect]
     Dosage: DF
     Dates: start: 20050203, end: 20051102

REACTIONS (1)
  - ACUTE FEBRILE NEUTROPHILIC DERMATOSIS [None]
